FAERS Safety Report 19185936 (Version 2)
Quarter: 2021Q2

REPORT INFORMATION
  Report Type: Report from Study
  Country: MY (occurrence: MY)
  Receive Date: 20210427
  Receipt Date: 20210506
  Transmission Date: 20210717
  Serious: Yes (Death, Hospitalization, Other)
  Sender: FDA-Public Use
  Company Number: MY-SEATTLE GENETICS-2020SGN01609

PATIENT
  Sex: Male
  Weight: 70 kg

DRUGS (1)
  1. BRENTUXIMAB VEDOTIN [Suspect]
     Active Substance: BRENTUXIMAB VEDOTIN
     Indication: HODGKIN^S DISEASE
     Dosage: 50 MILLIGRAM, Q3WEEKS
     Route: 042
     Dates: start: 20200306

REACTIONS (9)
  - Rash [Unknown]
  - Off label use [Unknown]
  - Cytokine release syndrome [Unknown]
  - Mediastinal mass [Recovering/Resolving]
  - Hodgkin^s disease recurrent [Fatal]
  - Asthenia [Unknown]
  - Decreased appetite [Unknown]
  - Serum ferritin increased [Unknown]
  - Cachexia [Unknown]
